FAERS Safety Report 5081972-1 (Version None)
Quarter: 2006Q3

REPORT INFORMATION
  Report Type: 
  Country: None (occurrence: None)
  Receive Date: 20060811
  Receipt Date: 20060731
  Transmission Date: 20061208
  Serious: Yes (Other)
  Sender: FDA-Public Use
  Company Number: HQWYE542231JUL06

PATIENT
  Age: 49 Year
  Sex: Female

DRUGS (2)
  1. PANTOPRAZOLE SODIUM [Suspect]
     Indication: GASTROOESOPHAGEAL REFLUX DISEASE
     Dosage: 40 MG 1X PER 1 DAY ORAL
     Route: 048
     Dates: start: 20060502, end: 20060513
  2. PASPERTIN (METOCLOPRAMIDE HYDROCHLORIDE) [Concomitant]

REACTIONS (1)
  - HAEMORRHAGE SUBCUTANEOUS [None]
